FAERS Safety Report 11965471 (Version 2)
Quarter: 2017Q1

REPORT INFORMATION
  Report Type: Spontaneous
  Country: JP (occurrence: JP)
  Receive Date: 20160127
  Receipt Date: 20170209
  Transmission Date: 20170428
  Serious: Yes (Other)
  Sender: FDA-Public Use
  Company Number: JP-SUN PHARMACEUTICAL INDUSTRIES LTD-2016R1-110237

PATIENT
  Age: 66 Year
  Sex: Male

DRUGS (8)
  1. CISPLATIN. [Suspect]
     Active Substance: CISPLATIN
     Indication: GASTRIC CANCER RECURRENT
     Dosage: 25 MG/M2, ADMINISTERED BIWEEKLY
     Route: 065
  2. TS-1 [Suspect]
     Active Substance: GIMERACIL\OTERACIL\TEGAFUR
     Indication: GASTRIC CANCER RECURRENT
     Dosage: 100 MG/BODY, ADMINISTERED ON DAYS 1 TO 14 EVERY 21 DAYS
  3. DEXAMETHASONE. [Suspect]
     Active Substance: DEXAMETHASONE
     Indication: PROPHYLAXIS
     Dosage: 8 MG, UNK
     Route: 065
  4. PACLITAXEL. [Suspect]
     Active Substance: PACLITAXEL
     Indication: GASTRIC CANCER RECURRENT
     Dosage: 80 MG/M2, ADMINISTERED BIWEEKLY
     Route: 065
  5. GRANISETRON [Concomitant]
     Active Substance: GRANISETRON
     Indication: PROPHYLAXIS
     Dosage: 3 MG, UNK
  6. GRANISETRON [Concomitant]
     Active Substance: GRANISETRON
     Indication: HYPERSENSITIVITY
  7. DEXAMETHASONE. [Suspect]
     Active Substance: DEXAMETHASONE
     Indication: HYPERSENSITIVITY
  8. DOCETAXEL. [Suspect]
     Active Substance: DOCETAXEL
     Indication: GASTRIC CANCER RECURRENT
     Dosage: 40 MG/M2, ADMINISTERED ON DAYS 1 AND 8
     Route: 065

REACTIONS (2)
  - Hypersensitivity [Unknown]
  - Gastrointestinal perforation [Recovering/Resolving]
